FAERS Safety Report 23774577 (Version 1)
Quarter: 2024Q2

REPORT INFORMATION
  Report Type: Spontaneous
  Country: US (occurrence: US)
  Receive Date: 20240423
  Receipt Date: 20240423
  Transmission Date: 20240716
  Serious: Yes (Other)
  Sender: FDA-Public Use
  Company Number: US-PFIZER INC-PV202400051388

PATIENT
  Age: 79 Year
  Sex: Male

DRUGS (5)
  1. VYNDAMAX [Suspect]
     Active Substance: TAFAMIDIS
     Indication: Cardiac amyloidosis
     Dosage: 61 MG, 1X/DAY
     Route: 048
     Dates: start: 20240416
  2. VYNDAMAX [Suspect]
     Active Substance: TAFAMIDIS
     Indication: Hepatocellular carcinoma
  3. VYNDAMAX [Suspect]
     Active Substance: TAFAMIDIS
     Indication: Congenital myasthenic syndrome
  4. ELIQUIS [Concomitant]
     Active Substance: APIXABAN
     Indication: Hernia
     Dosage: TAKE 1 TABLET (5 MG) BY MOUTH IN THE MORNING AND 1 TABLET (5MG) IN THE EVENING
     Route: 048
     Dates: start: 20230313
  5. LIPITOR [Concomitant]
     Active Substance: ATORVASTATIN CALCIUM
     Dosage: TAKE 1 TABLET (40 MG) BY MOUTH AT BEDTIME. TAKING 2X/WEEK
     Route: 048
     Dates: start: 20230222

REACTIONS (3)
  - Atrial fibrillation [Recovered/Resolved]
  - Atrial thrombosis [Recovering/Resolving]
  - Hypercholesterolaemia [Recovering/Resolving]
